FAERS Safety Report 16696716 (Version 2)
Quarter: 2019Q4

REPORT INFORMATION
  Report Type: Report from Study
  Country: US (occurrence: US)
  Receive Date: 20190813
  Receipt Date: 20191002
  Transmission Date: 20200122
  Serious: Yes (Other)
  Sender: FDA-Public Use
  Company Number: US-REGENERON PHARMACEUTICALS, INC.-2019-46419

PATIENT

DRUGS (2)
  1. EYLEA [Suspect]
     Active Substance: AFLIBERCEPT
     Indication: MACULAR OEDEMA
     Dosage: UNK, MONTHLY, IN THE LEFT EYE,LAST DOSE PRIOR TO EVENT
     Route: 031
     Dates: start: 20190620, end: 20190620
  2. EYLEA [Suspect]
     Active Substance: AFLIBERCEPT
     Indication: RETINAL VEIN OCCLUSION
     Dosage: UNK, MONTHLY, IN THE LEFT EYE
     Route: 031
     Dates: start: 201905

REACTIONS (2)
  - Eye pain [Unknown]
  - Conjunctival scar [Unknown]
